FAERS Safety Report 17472106 (Version 1)
Quarter: 2020Q1

REPORT INFORMATION
  Report Type: Spontaneous
  Country: US (occurrence: US)
  Receive Date: 20200228
  Receipt Date: 20200228
  Transmission Date: 20200409
  Serious: Yes (Hospitalization)
  Sender: FDA-Public Use
  Company Number: US-ROCHE-2554840

PATIENT
  Age: 73 Year
  Sex: Male

DRUGS (9)
  1. ESBRIET [Suspect]
     Active Substance: PIRFENIDONE
     Indication: IDIOPATHIC PULMONARY FIBROSIS
     Route: 048
     Dates: start: 20171230
  2. TRAMADOL HCL [Concomitant]
     Active Substance: TRAMADOL HYDROCHLORIDE
  3. NITROGLYCERIN. [Concomitant]
     Active Substance: NITROGLYCERIN
  4. BRILINTA [Concomitant]
     Active Substance: TICAGRELOR
  5. DICLOFENAC [Concomitant]
     Active Substance: DICLOFENAC
  6. CRESTOR [Concomitant]
     Active Substance: ROSUVASTATIN CALCIUM
  7. VALSART [Concomitant]
     Active Substance: VALSARTAN
  8. ZANTAC [Concomitant]
     Active Substance: RANITIDINE HYDROCHLORIDE
  9. LASIX [Concomitant]
     Active Substance: FUROSEMIDE

REACTIONS (1)
  - Back pain [Unknown]

NARRATIVE: CASE EVENT DATE: 202002
